FAERS Safety Report 4326380-3 (Version None)
Quarter: 2004Q1

REPORT INFORMATION
  Report Type: 
  Country: None (occurrence: None)
  Receive Date: 20040330
  Receipt Date: 20040319
  Transmission Date: 20041129
  Serious: Yes (Hospitalization, Other)
  Sender: FDA-Public Use
  Company Number: PHRM2004FR01290

PATIENT
  Age: 92 Year
  Sex: Female
  Weight: 68 kg

DRUGS (5)
  1. VOLTAREN [Suspect]
     Dosage: 75 MG, BID
     Route: 030
     Dates: start: 20040203, end: 20040208
  2. LEVOTHYROXINE SODIUM [Concomitant]
     Route: 048
  3. ISOPTIN TAB [Concomitant]
     Route: 048
  4. ZOLPIDEM TARTRATE [Concomitant]
     Route: 048
  5. MOPRAL [Concomitant]
     Dosage: UNK, UNK
     Route: 048

REACTIONS (8)
  - ANAEMIA [None]
  - BLOOD CREATININE INCREASED [None]
  - GASTRITIS [None]
  - HAEMOGLOBIN DECREASED [None]
  - MALAISE [None]
  - MELAENA [None]
  - PAIN IN EXTREMITY [None]
  - RENAL FAILURE ACUTE [None]
